FAERS Safety Report 6698526-3 (Version None)
Quarter: 2010Q2

REPORT INFORMATION
  Report Type: 
  Country: None (occurrence: None)
  Receive Date: 20100426
  Receipt Date: 20100426
  Transmission Date: 20101027
  Serious: Yes (Other)
  Sender: FDA-Public Use
  Company Number: None

PATIENT
  Age: 7 Year
  Sex: Female
  Weight: 27.2158 kg

DRUGS (2)
  1. PROMETHAZINE HCL [Suspect]
     Indication: VOMITING
     Dosage: 12.5 MG 1 RECTAL
     Route: 054
     Dates: start: 20090910, end: 20090910
  2. PROMETHAZINE HCL [Suspect]
     Indication: VOMITING
     Dosage: 12.5 MG 1 RECTAL
     Route: 054
     Dates: start: 20100420, end: 20100420

REACTIONS (2)
  - BURNING SENSATION [None]
  - PROCTALGIA [None]
